FAERS Safety Report 23662319 (Version 5)
Quarter: 2024Q2

REPORT INFORMATION
  Report Type: Spontaneous
  Country: GB (occurrence: GB)
  Receive Date: 20240322
  Receipt Date: 20240515
  Transmission Date: 20240715
  Serious: Yes (Hospitalization, Other)
  Sender: FDA-Public Use
  Company Number: None

PATIENT
  Age: 68 Year
  Sex: Male

DRUGS (14)
  1. OLANZAPINE [Suspect]
     Active Substance: OLANZAPINE
     Indication: Product used for unknown indication
     Dosage: UNK
  2. AMISULPRIDE [Suspect]
     Active Substance: AMISULPRIDE
     Indication: Product used for unknown indication
     Dosage: UNK
  3. CLOZARIL [Interacting]
     Active Substance: CLOZAPINE
     Indication: Schizophrenia
     Route: 048
     Dates: start: 20051208
  4. FLUCONAZOLE [Interacting]
     Active Substance: FLUCONAZOLE
     Indication: Product used for unknown indication
     Dosage: UNK
     Dates: start: 202401
  5. FLUCONAZOLE [Interacting]
     Active Substance: FLUCONAZOLE
     Indication: Product used for unknown indication
     Dosage: UNK
     Dates: start: 20240104
  6. FLUCONAZOLE [Interacting]
     Active Substance: FLUCONAZOLE
     Indication: Product used for unknown indication
     Dosage: UNK
     Dates: start: 20240114
  7. FLUCONAZOLE [Interacting]
     Active Substance: FLUCONAZOLE
     Indication: Product used for unknown indication
  8. FLUCONAZOLE [Interacting]
     Active Substance: FLUCONAZOLE
     Indication: Product used for unknown indication
  9. FLUCONAZOLE [Interacting]
     Active Substance: FLUCONAZOLE
     Indication: Product used for unknown indication
  10. PANTOPRAZOLE [Suspect]
     Active Substance: PANTOPRAZOLE
     Indication: Product used for unknown indication
     Dosage: UNK
  11. ROSUVASTATIN [Suspect]
     Active Substance: ROSUVASTATIN
     Indication: Product used for unknown indication
     Dosage: UNK
  12. SULFAMETHOXAZOLE\TRIMETHOPRIM [Suspect]
     Active Substance: SULFAMETHOXAZOLE\TRIMETHOPRIM
     Indication: Product used for unknown indication
     Dosage: UNK
  13. SERTRALINE [Suspect]
     Active Substance: SERTRALINE HYDROCHLORIDE
     Indication: Product used for unknown indication
     Dosage: UNK
  14. VALACYCLOVIR [Suspect]
     Active Substance: VALACYCLOVIR HYDROCHLORIDE
     Indication: Product used for unknown indication
     Dosage: UNK

REACTIONS (9)
  - Leukopenia [Recovering/Resolving]
  - Neutropenia [Recovered/Resolved]
  - White blood cell count increased [Not Recovered/Not Resolved]
  - Antipsychotic drug level increased [Unknown]
  - Neutrophil count increased [Not Recovered/Not Resolved]
  - Schizophrenia [Not Recovered/Not Resolved]
  - Lymphoma [Unknown]
  - Lymphocyte count decreased [Unknown]
  - Drug interaction [Unknown]

NARRATIVE: CASE EVENT DATE: 20230308
